FAERS Safety Report 6511047-3 (Version None)
Quarter: 2009Q4

REPORT INFORMATION
  Report Type: 
  Country: None (occurrence: None)
  Receive Date: 20091222
  Receipt Date: 20090504
  Transmission Date: 20100525
  Serious: No
  Sender: FDA-Public Use
  Company Number: US-ASTRAZENECA-2009UW04657

PATIENT
  Age: 65 Year
  Sex: Male
  Weight: 86.2 kg

DRUGS (6)
  1. CRESTOR [Suspect]
     Indication: HYPERCHOLESTEROLAEMIA
     Route: 048
     Dates: start: 20090118
  2. BENICAR [Concomitant]
     Indication: ATRIAL FIBRILLATION
  3. METOPROLOL TARTRATE [Concomitant]
  4. COUMADIN [Concomitant]
  5. POTASSIUM [Concomitant]
  6. CLONAZEPAM [Concomitant]

REACTIONS (4)
  - FATIGUE [None]
  - MICTURITION URGENCY [None]
  - MOOD ALTERED [None]
  - URINARY INCONTINENCE [None]
